FAERS Safety Report 8830505 (Version 2)
Quarter: 2012Q4

REPORT INFORMATION
  Report Type: 
  Country: US (occurrence: US)
  Receive Date: 20121009
  Receipt Date: 20121101
  Transmission Date: 20130627
  Serious: Yes (Hospitalization)
  Sender: FDA-Public Use
  Company Number: US-ELI_LILLY_AND_COMPANY-US201209008159

PATIENT
  Sex: Female
  Weight: 73.02 kg

DRUGS (11)
  1. ZYPREXA RELPREVV [Suspect]
     Indication: SCHIZOAFFECTIVE DISORDER
     Dosage: 405 mg, monthly (1/M)
     Route: 030
     Dates: start: 20120419, end: 20121009
  2. ZYPREXA RELPREVV [Suspect]
     Dosage: 300 mg, unknown
     Dates: end: 20120719
  3. ZYPREXA [Suspect]
     Dosage: 5 mg, qd
  4. ZYPREXA [Suspect]
     Dosage: 15 mg, qd
  5. KEPPRA [Concomitant]
     Indication: CONVULSION
     Dosage: 500 mg, tid
  6. ARICEPT [Concomitant]
     Dosage: 5 mg, qd
  7. EFFEXOR [Concomitant]
     Dosage: 150 mg, qd
  8. TRAZODONE [Concomitant]
     Dosage: 100 mg, prn
  9. HYDROCHLOROTHIAZIDE [Concomitant]
     Dosage: 25 mg, qd
  10. COUMADIN [Concomitant]
     Dosage: 7 mg, qd
  11. LISINOPRIL [Concomitant]
     Dosage: 10 mg, bid

REACTIONS (2)
  - Schizoaffective disorder [Recovering/Resolving]
  - Prescribed overdose [Recovered/Resolved]
